FAERS Safety Report 12617193 (Version 1)
Quarter: 2016Q3

REPORT INFORMATION
  Report Type: Spontaneous
  Country: ES (occurrence: ES)
  Receive Date: 20160803
  Receipt Date: 20160803
  Transmission Date: 20161109
  Serious: Yes (Other)
  Sender: FDA-Public Use
  Company Number: ES-009507513-1608ESP000767

PATIENT
  Age: 76 Year
  Sex: Female

DRUGS (2)
  1. CRESTOR [Interacting]
     Active Substance: ROSUVASTATIN CALCIUM
     Indication: PRODUCT USED FOR UNKNOWN INDICATION
     Dosage: 20 MG, 1 IN 1 DAY
     Route: 065
     Dates: start: 20160419
  2. ABSORCOL 10 MG COMPRIMIDOS [Suspect]
     Active Substance: EZETIMIBE
     Dosage: 10 MG, 1 IN 1 DAY
     Route: 048
     Dates: start: 20160718, end: 20160720

REACTIONS (4)
  - Paraesthesia oral [Unknown]
  - Oedema peripheral [Unknown]
  - Drug interaction [None]
  - Paraesthesia [Unknown]

NARRATIVE: CASE EVENT DATE: 201607
